FAERS Safety Report 4295906-0 (Version None)
Quarter: 2004Q1

REPORT INFORMATION
  Report Type: 
  Country: None (occurrence: None)
  Receive Date: 20040216
  Receipt Date: 20031203
  Transmission Date: 20041129
  Serious: No
  Sender: FDA-Public Use
  Company Number: US-GLAXOSMITHKLINE-A0441782A

PATIENT
  Age: 59 Year
  Sex: Female

DRUGS (5)
  1. LAMICTAL [Suspect]
     Indication: BIPOLAR DISORDER
     Dosage: 25MG PER DAY
     Route: 048
     Dates: start: 20031101
  2. ATIVAN [Concomitant]
  3. ESTROGEN PATCH [Concomitant]
  4. ZANTAC [Concomitant]
  5. FOSAMAX [Concomitant]

REACTIONS (2)
  - RASH [None]
  - TINNITUS [None]
